FAERS Safety Report 10966399 (Version 4)
Quarter: 2020Q1

REPORT INFORMATION
  Report Type: Spontaneous
  Country: US (occurrence: US)
  Receive Date: 20150330
  Receipt Date: 20200203
  Transmission Date: 20200409
  Serious: Yes (Hospitalization)
  Sender: FDA-Public Use
  Company Number: US-PFIZER INC-2015105662

PATIENT
  Age: 51 Year
  Sex: Female
  Weight: 90 kg

DRUGS (11)
  1. LYRICA [Suspect]
     Active Substance: PREGABALIN
     Indication: LUMBOSACRAL RADICULOPATHY
  2. CELEBREX [Concomitant]
     Active Substance: CELECOXIB
     Indication: ARTHRITIS
     Dosage: 200 MG, 1X/DAY
  3. TRIBENZOR [Concomitant]
     Active Substance: AMLODIPINE BESYLATE\HYDROCHLOROTHIAZIDE\OLMESARTAN MEDOXOMIL
     Dosage: 40MG/ 10MG/ 25MG
  4. TRAMADOL. [Concomitant]
     Active Substance: TRAMADOL
     Indication: PAIN
     Dosage: 20 MG, 3X/DAY (EVERY EIGHT HOURS) AS NEEDED
  5. IB MOTRIN [Concomitant]
     Dosage: 600 6HR AS NEEDED
  6. DICYCLOMINE [Suspect]
     Active Substance: DICYCLOMINE HYDROCHLORIDE
     Indication: IRRITABLE BOWEL SYNDROME
     Dosage: 10 MG, UNK
     Dates: start: 20150302
  7. PAXIL [Concomitant]
     Active Substance: PAROXETINE HYDROCHLORIDE
     Indication: GASTROOESOPHAGEAL REFLUX DISEASE
     Dosage: 20 MG, 1X/DAY
  8. NEXIUM [Concomitant]
     Active Substance: ESOMEPRAZOLE MAGNESIUM
     Dosage: 40 MG, 1X/DAY
  9. LYRICA [Suspect]
     Active Substance: PREGABALIN
     Indication: FIBROMYALGIA
     Dosage: 50 MG, 2X/DAY
     Dates: start: 201410
  10. LYRICA [Suspect]
     Active Substance: PREGABALIN
     Indication: THORACIC RADICULOPATHY
     Dosage: 75 MG, 2X/DAY
     Route: 048
  11. SUCCINATE SODIUM [Concomitant]
     Dosage: 50 MG, 1X/DAY

REACTIONS (2)
  - Hysterectomy [Recovered/Resolved]
  - Pain [Unknown]

NARRATIVE: CASE EVENT DATE: 20150211
